FAERS Safety Report 9201766 (Version 1)
Quarter: 2013Q2

REPORT INFORMATION
  Report Type: Spontaneous
  Country: US (occurrence: US)
  Receive Date: 20130401
  Receipt Date: 20130401
  Transmission Date: 20140414
  Serious: Yes (Death)
  Sender: FDA-Public Use
  Company Number: US-ASTRAZENECA-2013SE20351

PATIENT
  Age: 75 Year
  Sex: Female
  Weight: 52.6 kg

DRUGS (7)
  1. ATACAND [Suspect]
     Indication: HYPERTENSION
     Dosage: DAILY
     Route: 048
     Dates: start: 2010
  2. OMEPRAZOLE [Suspect]
     Route: 048
  3. NORVASC [Concomitant]
  4. BYSTOLIC [Concomitant]
  5. LASIX [Concomitant]
  6. B12 [Concomitant]
  7. LOMOTIL [Concomitant]

REACTIONS (1)
  - Lung neoplasm malignant [Fatal]
